FAERS Safety Report 20447662 (Version 1)
Quarter: 2022Q1

REPORT INFORMATION
  Report Type: Spontaneous
  Country: US (occurrence: None)
  Receive Date: 20220209
  Receipt Date: 20220209
  Transmission Date: 20220423
  Serious: No
  Sender: FDA-Public Use
  Company Number: US-ROCHE-2880362

PATIENT

DRUGS (1)
  1. ROZLYTREK [Suspect]
     Active Substance: ENTRECTINIB
     Indication: Lung neoplasm malignant
     Dosage: PATIENT IS DECREASING FROM GETTING 90 CAPSULES TO 60 CAPSULES
     Route: 048

REACTIONS (1)
  - Anaemia [Not Recovered/Not Resolved]
